FAERS Safety Report 9914287 (Version 1)
Quarter: 2014Q1

REPORT INFORMATION
  Report Type: Spontaneous
  Country: US (occurrence: None)
  Receive Date: 20140219
  Receipt Date: 20140219
  Transmission Date: 20141002
  Serious: Yes (Disabling)
  Sender: FDA-Public Use
  Company Number: None

PATIENT
  Age: 60 Year
  Sex: Female
  Weight: 58.97 kg

DRUGS (2)
  1. PROPRANOLOL HYDROCHLORIDE [Suspect]
     Indication: MIGRAINE PROPHYLAXIS
     Dosage: 20 MG/DAY; 1ST 5 DAYS, 40 MG 2N; ONCE DAILY
     Route: 048
     Dates: start: 20140212, end: 20140218
  2. SUMATRIPTAN SUCCINATE [Suspect]
     Indication: MIGRAINE
     Route: 048
     Dates: start: 20130116, end: 20130228

REACTIONS (7)
  - Fatigue [None]
  - Confusional state [None]
  - Impaired driving ability [None]
  - Arthralgia [None]
  - Depression [None]
  - Thirst [None]
  - Weight increased [None]
